FAERS Safety Report 19385903 (Version 2)
Quarter: 2021Q2

REPORT INFORMATION
  Report Type: Spontaneous
  Country: US (occurrence: US)
  Receive Date: 20210608
  Receipt Date: 20210623
  Transmission Date: 20210717
  Serious: No
  Sender: FDA-Public Use
  Company Number: US-LUPIN PHARMACEUTICALS INC.-2021-08297

PATIENT
  Age: 83 Year
  Sex: Female

DRUGS (6)
  1. TUMS [Concomitant]
     Active Substance: CALCIUM CARBONATE
     Indication: FLATULENCE
     Dosage: UNK
     Route: 065
  2. LORAZEPAM. [Concomitant]
     Active Substance: LORAZEPAM
     Indication: SLEEP DISORDER
     Dosage: UNK UNK, PRN
     Route: 065
  3. CLOBETASOL PROPIONATE CREAM USP, 0.05 [Suspect]
     Active Substance: CLOBETASOL PROPIONATE
     Indication: PSORIASIS
  4. CLOBETASOL PROPIONATE CREAM USP, 0.05 [Suspect]
     Active Substance: CLOBETASOL PROPIONATE
     Indication: PRURITUS
     Dosage: UNK, 1 TIMES PER WEEK
     Route: 062
     Dates: start: 20210502
  5. OMEPRAZOLE. [Concomitant]
     Active Substance: OMEPRAZOLE
     Indication: GASTROOESOPHAGEAL REFLUX DISEASE
     Dosage: UNK
     Route: 065
  6. CLOBETASOL PROPIONATE CREAM USP, 0.05 [Suspect]
     Active Substance: CLOBETASOL PROPIONATE
     Indication: ECZEMA

REACTIONS (5)
  - Flatulence [Not Recovered/Not Resolved]
  - Nausea [Not Recovered/Not Resolved]
  - Intentional product misuse [Unknown]
  - Abdominal distension [Not Recovered/Not Resolved]
  - Abdominal pain upper [Not Recovered/Not Resolved]

NARRATIVE: CASE EVENT DATE: 202105
